FAERS Safety Report 7673937-8 (Version None)
Quarter: 2011Q3

REPORT INFORMATION
  Report Type: 
  Country: None (occurrence: None)
  Receive Date: 20110810
  Receipt Date: 20110511
  Transmission Date: 20111222
  Serious: No
  Sender: FDA-Public Use
  Company Number: US-GLAXOSMITHKLINE-A0927002A

PATIENT
  Age: 55 Year
  Sex: Female

DRUGS (2)
  1. PAXIL [Suspect]
     Indication: ANXIETY
     Dosage: 5MG PER DAY
     Route: 048
     Dates: start: 20050501
  2. NO CONCURRENT MEDICATION [Concomitant]

REACTIONS (6)
  - PRODUCT QUALITY ISSUE [None]
  - ANXIETY [None]
  - HOT FLUSH [None]
  - DIARRHOEA [None]
  - AGITATION [None]
  - DRUG ADMINISTRATION ERROR [None]
